FAERS Safety Report 14476591 (Version 1)
Quarter: 2018Q1

REPORT INFORMATION
  Report Type: Spontaneous
  Country: US (occurrence: US)
  Receive Date: 20180201
  Receipt Date: 20180201
  Transmission Date: 20180509
  Serious: No
  Sender: FDA-Public Use
  Company Number: US-SA-2017SA236415

PATIENT
  Age: 85 Year
  Sex: Female

DRUGS (4)
  1. PRALUENT [Suspect]
     Active Substance: ALIROCUMAB
     Dosage: STRENGTH  : 75 MG/ML
     Route: 058
  2. ALIROCUMAB PREFILLED PEN [Suspect]
     Active Substance: ALIROCUMAB
     Dosage: STRENGTH  : 150 MG/ML
  3. PRALUENT [Suspect]
     Active Substance: ALIROCUMAB
     Dosage: STRENGTH  : 150MG/ML
     Route: 058
  4. ALIROCUMAB PREFILLED PEN [Suspect]
     Active Substance: ALIROCUMAB
     Dosage: DOSE : 75 MG/ML

REACTIONS (1)
  - Hepatic enzyme increased [Unknown]

NARRATIVE: CASE EVENT DATE: 20171014
